FAERS Safety Report 15165263 (Version 1)
Quarter: 2018Q3

REPORT INFORMATION
  Report Type: Spontaneous
  Country: DK (occurrence: DK)
  Receive Date: 20180719
  Receipt Date: 20180719
  Transmission Date: 20181010
  Serious: Yes (Hospitalization)
  Sender: FDA-Public Use
  Company Number: DK-ASTRAZENECA-2018SE89328

PATIENT
  Age: 67 Year
  Sex: Male

DRUGS (6)
  1. ARIXTRA [Suspect]
     Active Substance: FONDAPARINUX SODIUM
     Indication: ANTICOAGULANT THERAPY
     Route: 065
  2. RAPIFEN [Concomitant]
     Indication: ANALGESIC THERAPY
     Dosage: STYRKE: 0,5 MG/ML.
     Dates: start: 20150523, end: 20150523
  3. DIAZEPAM. [Concomitant]
     Active Substance: DIAZEPAM
     Indication: SEDATION
     Dates: start: 20150923, end: 20150923
  4. BRILIQUE [Suspect]
     Active Substance: TICAGRELOR
     Indication: ANTICOAGULANT THERAPY
     Route: 048
  5. HJERTEMAGNYL [Suspect]
     Active Substance: ASPIRIN\MAGNESIUM OXIDE
     Indication: ANTICOAGULANT THERAPY
     Route: 048
     Dates: start: 20140317
  6. ZOLPIDEM [Concomitant]
     Active Substance: ZOLPIDEM\ZOLPIDEM TARTRATE
     Indication: SEDATION
     Dates: start: 20150923, end: 20150923

REACTIONS (17)
  - Loss of personal independence in daily activities [Not Recovered/Not Resolved]
  - Confusional state [Unknown]
  - Disturbance in attention [Not Recovered/Not Resolved]
  - Apathy [Unknown]
  - Mood altered [Unknown]
  - Brain midline shift [Unknown]
  - Fatigue [Not Recovered/Not Resolved]
  - Memory impairment [Not Recovered/Not Resolved]
  - Intraventricular haemorrhage [Recovered/Resolved]
  - Ataxia [Not Recovered/Not Resolved]
  - Mental disability [Not Recovered/Not Resolved]
  - Cerebral haematoma [Recovered/Resolved with Sequelae]
  - Antisocial behaviour [Unknown]
  - Sensory disturbance [Not Recovered/Not Resolved]
  - Cognitive disorder [Recovering/Resolving]
  - Disorientation [Recovered/Resolved]
  - Cerebral haemorrhage [Recovered/Resolved with Sequelae]

NARRATIVE: CASE EVENT DATE: 2015
